FAERS Safety Report 7707698-0 (Version None)
Quarter: 2011Q3

REPORT INFORMATION
  Report Type: 
  Country: None (occurrence: None)
  Receive Date: 20110824
  Receipt Date: 20110818
  Transmission Date: 20111222
  Serious: Yes (Other)
  Sender: FDA-Public Use
  Company Number: AR-PFIZER INC-2011190910

PATIENT
  Age: 59 Year
  Sex: Female

DRUGS (8)
  1. METOCLOPRAMIDE [Concomitant]
     Dosage: 30 MG, 3X/DAY
  2. PHENYTOIN SODIUM [Suspect]
     Indication: STATUS EPILEPTICUS
  3. PHENYTOIN SODIUM [Suspect]
     Indication: MENINGITIS BACTERIAL
  4. ACYCLOVIR [Concomitant]
     Dosage: 2100 MG, 3X/DAY
  5. RANITIDINE [Concomitant]
     Dosage: 200 MG, 4X/DAY
  6. CEFTRIAXONE [Concomitant]
     Dosage: 4 G, 2X/DAY
  7. AMPICILLIN [Concomitant]
     Dosage: 2 G X 6
  8. MORPHINE [Concomitant]
     Dosage: 30 MG, 1X/DAY

REACTIONS (1)
  - DRUG RASH WITH EOSINOPHILIA AND SYSTEMIC SYMPTOMS [None]
